FAERS Safety Report 9632851 (Version 4)
Quarter: 2013Q4

REPORT INFORMATION
  Report Type: Spontaneous
  Country: US (occurrence: US)
  Receive Date: 20131018
  Receipt Date: 20131227
  Transmission Date: 20140711
  Serious: Yes (Other)
  Sender: FDA-Public Use
  Company Number: US-ASTRAZENECA-2013SE70455

PATIENT
  Age: 29954 Day
  Sex: Male
  Weight: 85.3 kg

DRUGS (36)
  1. CRESTOR [Suspect]
     Indication: BLOOD CHOLESTEROL ABNORMAL
     Route: 048
     Dates: start: 2011
  2. CRESTOR [Suspect]
     Indication: HYPERLIPIDAEMIA
     Route: 048
     Dates: start: 2011
  3. CRESTOR [Suspect]
     Indication: BLOOD CHOLESTEROL ABNORMAL
     Route: 048
     Dates: start: 2013
  4. CRESTOR [Suspect]
     Indication: HYPERLIPIDAEMIA
     Route: 048
     Dates: start: 2013
  5. CRESTOR [Suspect]
     Indication: BLOOD CHOLESTEROL ABNORMAL
     Route: 048
     Dates: start: 2013
  6. CRESTOR [Suspect]
     Indication: HYPERLIPIDAEMIA
     Route: 048
     Dates: start: 2013
  7. CRESTOR [Suspect]
     Indication: BLOOD CHOLESTEROL ABNORMAL
     Route: 048
     Dates: start: 20121110
  8. CRESTOR [Suspect]
     Indication: HYPERLIPIDAEMIA
     Route: 048
     Dates: start: 20121110
  9. BRILINTA [Suspect]
     Indication: CORONARY ARTERY THROMBOSIS
     Route: 048
     Dates: start: 20130918, end: 20130930
  10. BRILINTA [Suspect]
     Indication: CORONARY ARTERY DISEASE
     Route: 048
     Dates: start: 20130918, end: 20130930
  11. BRILINTA [Suspect]
     Indication: CORONARY ARTERY BYPASS
     Route: 048
     Dates: start: 20130918, end: 20130930
  12. BRILINTA [Suspect]
     Indication: CARDIAC OPERATION
     Route: 048
     Dates: start: 20130918, end: 20130930
  13. BRILINTA [Suspect]
     Indication: CORONARY ARTERY THROMBOSIS
     Route: 048
     Dates: end: 20131001
  14. BRILINTA [Suspect]
     Indication: CORONARY ARTERY DISEASE
     Route: 048
     Dates: end: 20131001
  15. BRILINTA [Suspect]
     Indication: CORONARY ARTERY BYPASS
     Route: 048
     Dates: end: 20131001
  16. BRILINTA [Suspect]
     Indication: CARDIAC OPERATION
     Route: 048
     Dates: end: 20131001
  17. ASPIRIN [Suspect]
     Indication: ANTICOAGULANT THERAPY
     Route: 065
  18. ASPIRIN [Suspect]
     Indication: CORONARY ARTERY DISEASE
     Route: 065
  19. ASPIRIN [Suspect]
     Indication: ANTICOAGULANT THERAPY
     Route: 065
  20. ASPIRIN [Suspect]
     Indication: CORONARY ARTERY DISEASE
     Route: 065
  21. ASPIRIN [Suspect]
     Indication: ANTICOAGULANT THERAPY
     Route: 065
  22. ASPIRIN [Suspect]
     Indication: CORONARY ARTERY DISEASE
     Route: 065
  23. PLAVIX [Suspect]
     Route: 065
  24. PLAVIX [Suspect]
     Dosage: 75 MG ONE AND A HALF TABLETS
     Route: 065
  25. COLACE [Concomitant]
     Indication: FAECES HARD
  26. ALLOPURINOL [Concomitant]
     Indication: GOUT
  27. FISH OIL AND OMEGA 3 [Concomitant]
  28. ZALEPON [Concomitant]
     Indication: SLEEP DISORDER
  29. MELATONIN [Concomitant]
     Indication: SLEEP DISORDER
  30. MELATONIN [Concomitant]
     Indication: SLEEP DISORDER
  31. ACIPHEX [Concomitant]
     Indication: GASTRIC DISORDER
  32. ACIPHEX [Concomitant]
     Indication: GASTROOESOPHAGEAL REFLUX DISEASE
  33. ACIPHEX [Concomitant]
     Indication: GASTRIC DISORDER
  34. ACIPHEX [Concomitant]
     Indication: GASTROOESOPHAGEAL REFLUX DISEASE
  35. NITROGLYCERINE [Concomitant]
     Dosage: PRN
  36. LIPITOR [Concomitant]

REACTIONS (11)
  - Squamous cell carcinoma [Unknown]
  - Personality change [Recovered/Resolved]
  - Dry mouth [Not Recovered/Not Resolved]
  - Dyspnoea [Not Recovered/Not Resolved]
  - Dyspnoea [Not Recovered/Not Resolved]
  - Irritability [Not Recovered/Not Resolved]
  - Drug level changed [Unknown]
  - Pain in extremity [Not Recovered/Not Resolved]
  - Depressed mood [Unknown]
  - Muscle spasms [Unknown]
  - Off label use [Not Recovered/Not Resolved]
